FAERS Safety Report 5114249-6 (Version None)
Quarter: 2006Q3

REPORT INFORMATION
  Report Type: 
  Country: None (occurrence: None)
  Receive Date: 20060925
  Receipt Date: 20060918
  Transmission Date: 20061208
  Serious: Yes (Hospitalization)
  Sender: FDA-Public Use
  Company Number: ES-BOEHRINGER INGELHEIM PHARMACEUTICALS, INC.-2006-ES-00320ES

PATIENT
  Age: 78 Year
  Sex: Female

DRUGS (4)
  1. MIRAPEXIN [Suspect]
     Indication: EXTRAPYRAMIDAL DISORDER
     Route: 048
     Dates: start: 20050617
  2. ENALAPRIL [Concomitant]
     Indication: ESSENTIAL HYPERTENSION
     Dates: start: 20050615
  3. COROPRES [Concomitant]
     Indication: CARDIAC FAILURE
     Route: 048
     Dates: start: 20050615
  4. SEGURIL [Concomitant]
     Indication: CARDIAC FAILURE
     Route: 048
     Dates: start: 20060428

REACTIONS (2)
  - HYPONATRAEMIA [None]
  - SOMNOLENCE [None]
